FAERS Safety Report 6530231-6 (Version None)
Quarter: 2010Q1

REPORT INFORMATION
  Report Type: 
  Country: None (occurrence: None)
  Receive Date: 20100107
  Receipt Date: 20091228
  Transmission Date: 20100710
  Serious: Yes (Other)
  Sender: FDA-Public Use
  Company Number: JP-PFIZER INC-2010000749

PATIENT
  Age: 65 Year
  Sex: Male

DRUGS (2)
  1. SUNITINIB MALATE [Suspect]
     Indication: RENAL CELL CARCINOMA
     Dosage: 25 MG, DAILY
     Route: 048
     Dates: start: 20091211, end: 20091212
  2. SORAFENIB TOSILATE [Concomitant]
     Route: 048
     Dates: end: 20091210

REACTIONS (1)
  - CEREBRAL HAEMORRHAGE [None]
